FAERS Safety Report 10456812 (Version 3)
Quarter: 2014Q4

REPORT INFORMATION
  Report Type: Spontaneous
  Country: IT (occurrence: IT)
  Receive Date: 20140916
  Receipt Date: 20141205
  Transmission Date: 20150528
  Serious: Yes (Hospitalization)
  Sender: FDA-Public Use
  Company Number: IT-009507513-1409ITA005259

PATIENT
  Age: 51 Year
  Sex: Male

DRUGS (1)
  1. TRILAFON [Suspect]
     Active Substance: PERPHENAZINE
     Indication: INTENTIONAL SELF-INJURY
     Dosage: STRENGTH 4 MG, FREQUENCY:TOTAL, TOTAL DAILY DOSE 80MG
     Route: 048
     Dates: start: 20140829, end: 20140829

REACTIONS (2)
  - Intentional self-injury [Recovered/Resolved]
  - Sopor [Recovered/Resolved]

NARRATIVE: CASE EVENT DATE: 20140829
